FAERS Safety Report 14690669 (Version 1)
Quarter: 2018Q1

REPORT INFORMATION
  Report Type: Spontaneous
  Country: JP (occurrence: JP)
  Receive Date: 20180328
  Receipt Date: 20180328
  Transmission Date: 20180509
  Serious: Yes (Other)
  Sender: FDA-Public Use
  Company Number: JP-BAYER-2018-055987

PATIENT
  Age: 49 Year
  Sex: Female

DRUGS (2)
  1. GADOVIST [Suspect]
     Active Substance: GADOBUTROL
     Indication: BREAST CANCER
     Dosage: 7.5 ML, ONCE
     Route: 042
     Dates: start: 20180308, end: 20180308
  2. GADOVIST [Suspect]
     Active Substance: GADOBUTROL
     Indication: NUCLEAR MAGNETIC RESONANCE IMAGING

REACTIONS (7)
  - Chills [Recovered/Resolved]
  - Feeling abnormal [None]
  - Feeling cold [Recovering/Resolving]
  - Peripheral coldness [Recovering/Resolving]
  - Cyanosis [Recovering/Resolving]
  - Lung disorder [Recovering/Resolving]
  - Pyrexia [Recovering/Resolving]

NARRATIVE: CASE EVENT DATE: 20180308
